FAERS Safety Report 14782164 (Version 5)
Quarter: 2021Q1

REPORT INFORMATION
  Report Type: Report from Study
  Country: None (occurrence: JP)
  Receive Date: 20180420
  Receipt Date: 20210211
  Transmission Date: 20210419
  Serious: Yes (Hospitalization)
  Sender: FDA-Public Use
  Company Number: JP-ABBVIE-18P-087-2329407-00

PATIENT
  Age: 57 Year
  Sex: Male

DRUGS (2)
  1. LEUPLIN [Suspect]
     Active Substance: LEUPROLIDE ACETATE
     Indication: BULBOSPINAL MUSCULAR ATROPHY CONGENITAL
     Dosage: 11.25 MILLIGRAM, Q3MONTHS
     Route: 058
     Dates: start: 20171020, end: 20180112
  2. LEUPLIN [Suspect]
     Active Substance: LEUPROLIDE ACETATE
     Dosage: 11.25 MILLIGRAM, Q3MONTHS
     Route: 058
     Dates: start: 20180712

REACTIONS (2)
  - Pneumothorax [Recovered/Resolved]
  - Depression [Unknown]

NARRATIVE: CASE EVENT DATE: 20180405
